FAERS Safety Report 5486147-X (Version None)
Quarter: 2007Q4

REPORT INFORMATION
  Report Type: 
  Country: None (occurrence: None)
  Receive Date: 20071015
  Receipt Date: 20071008
  Transmission Date: 20080405
  Serious: Yes (Other)
  Sender: FDA-Public Use
  Company Number: US-PFIZER INC-2006154960

PATIENT
  Age: 35 Year
  Sex: Female

DRUGS (9)
  1. NICOTROL [Suspect]
     Indication: SMOKING CESSATION THERAPY
  2. ATIVAN [Concomitant]
  3. FORADIL [Concomitant]
     Dates: start: 20060601
  4. SPIRIVA [Concomitant]
     Dates: start: 20060601
  5. ALLEGRA [Concomitant]
     Dates: start: 20060601
  6. ELAVIL [Concomitant]
     Dates: start: 20060601
  7. ESTROGENS [Concomitant]
  8. LEVONORGESTREL [Concomitant]
  9. OTHER ANTI-ASTHMATICS, INHALANTS [Concomitant]

REACTIONS (8)
  - ASTHMA [None]
  - DEPRESSION [None]
  - DRUG EFFECT DECREASED [None]
  - FOOT DEFORMITY [None]
  - MENOPAUSE [None]
  - PEDAL PULSE DECREASED [None]
  - THROAT IRRITATION [None]
  - TOTAL LUNG CAPACITY DECREASED [None]
